FAERS Safety Report 9455206 (Version 1)
Quarter: 2013Q1

REPORT INFORMATION
  Report Type: Spontaneous
  Country: US (occurrence: None)
  Receive Date: 20120907
  Receipt Date: 20120907
  Transmission Date: 20140127
  Serious: Yes (Other)
  Sender: FDA-Public Use
  Company Number: 2012-00150

PATIENT
  Age: 21 Year
  Sex: Female
  Weight: 58.97 kg

DRUGS (1)
  1. ZICAM COLD REMEDY RAPIDMELTS [Suspect]
     Dosage: X2,  X1
     Route: 048
     Dates: start: 20120823, end: 20120824

REACTIONS (9)
  - Convulsion [None]
  - Fall [None]
  - Head injury [None]
  - Loss of consciousness [None]
  - Memory impairment [None]
  - Headache [None]
  - Tinnitus [None]
  - Asthenia [None]
  - Vomiting [None]
